FAERS Safety Report 8914323 (Version 2)
Quarter: 2013Q2

REPORT INFORMATION
  Report Type: Spontaneous
  Country: DK (occurrence: DK)
  Receive Date: 20121119
  Receipt Date: 20130408
  Transmission Date: 20140414
  Serious: Yes (Other)
  Sender: FDA-Public Use
  Company Number: DK-FRI-1000040441

PATIENT
  Sex: Female

DRUGS (6)
  1. CITALOPRAM [Suspect]
     Indication: PRODUCT USED FOR UNKNOWN INDICATION
     Dosage: 20 MG
     Dates: start: 20041205, end: 200603
  2. CITALOPRAM [Suspect]
     Dosage: 10 MG
     Dates: start: 200603, end: 200608
  3. CITALOPRAM [Suspect]
     Indication: PRODUCT USED FOR UNKNOWN INDICATION
     Dosage: 20 MG
     Dates: start: 200608, end: 2010
  4. EFEXOR [Suspect]
     Indication: SUICIDAL IDEATION
     Dosage: 75 MG
     Dates: start: 20030320, end: 20040102
  5. EFEXOR [Suspect]
     Indication: RESTLESSNESS
  6. EFEXOR [Suspect]
     Indication: AGITATION

REACTIONS (9)
  - Obsessive-compulsive disorder [Unknown]
  - Sleep disorder [Unknown]
  - Anxiety [Unknown]
  - Gastrointestinal disorder [Unknown]
  - Memory impairment [Unknown]
  - Immune system disorder [Unknown]
  - Weight increased [Unknown]
  - Bulimia nervosa [Unknown]
  - Hormone level abnormal [Unknown]
